FAERS Safety Report 25591987 (Version 1)
Quarter: 2025Q3

REPORT INFORMATION
  Report Type: Spontaneous
  Country: US (occurrence: US)
  Receive Date: 20250722
  Receipt Date: 20250722
  Transmission Date: 20251021
  Serious: Yes (Other)
  Sender: AMGEN
  Company Number: US-AMGEN-USASP2025141666

PATIENT
  Age: 37 Day
  Sex: Male

DRUGS (6)
  1. IVABRADINE [Suspect]
     Active Substance: IVABRADINE
     Indication: Accelerated idioventricular rhythm
  2. IVABRADINE [Suspect]
     Active Substance: IVABRADINE
     Indication: Off label use
     Dosage: 0.05 MILLIGRAM/KILOGRAM, BID
  3. IVABRADINE [Suspect]
     Active Substance: IVABRADINE
     Dosage: 0.03 MILLIGRAM/KILOGRAM, BID DOSE WAS REDUCED
  4. IVABRADINE [Suspect]
     Active Substance: IVABRADINE
     Dosage: 0.05 MILLIGRAM/KILOGRAM, BID
  5. PROPRANOLOL [Concomitant]
     Active Substance: PROPRANOLOL HYDROCHLORIDE
     Indication: Accelerated idioventricular rhythm
     Dosage: 2 MILLIGRAM/KILOGRAM, QD
  6. PROPRANOLOL [Concomitant]
     Active Substance: PROPRANOLOL HYDROCHLORIDE
     Dosage: 4 MILLIGRAM/KILOGRAM, QD

REACTIONS (6)
  - Necrotising colitis [Unknown]
  - Sinus bradycardia [Recovered/Resolved]
  - Accelerated idioventricular rhythm [Unknown]
  - Pneumatosis [Unknown]
  - Vomiting [Unknown]
  - Off label use [Unknown]
